FAERS Safety Report 16609810 (Version 2)
Quarter: 2019Q3

REPORT INFORMATION
  Report Type: Report from Study
  Country: US (occurrence: US)
  Receive Date: 20190722
  Receipt Date: 20190729
  Transmission Date: 20191004
  Serious: Yes (Hospitalization)
  Sender: FDA-Public Use
  Company Number: US-ACTELION-A-NJ2019-193194

PATIENT
  Age: 65 Year
  Sex: Female

DRUGS (2)
  1. OPSUMIT [Suspect]
     Active Substance: MACITENTAN
     Indication: PULMONARY ARTERIAL HYPERTENSION
     Dosage: 10 MG, QD
     Route: 048
     Dates: start: 201906, end: 201907
  2. ADEMPAS [Concomitant]
     Active Substance: RIOCIGUAT
     Dosage: 5 MG, TID
     Dates: start: 20190702

REACTIONS (7)
  - Fluid retention [Unknown]
  - Pericardial effusion [Unknown]
  - Fatigue [Unknown]
  - Unevaluable event [Not Recovered/Not Resolved]
  - Dyspnoea [Recovering/Resolving]
  - Renal disorder [Unknown]
  - Pleural effusion [Unknown]

NARRATIVE: CASE EVENT DATE: 2019
